FAERS Safety Report 23588473 (Version 1)
Quarter: 2024Q1

REPORT INFORMATION
  Report Type: Report from Study
  Country: FR (occurrence: FR)
  Receive Date: 20240302
  Receipt Date: 20240302
  Transmission Date: 20240410
  Serious: Yes (Life-Threatening, Hospitalization, Other)
  Sender: FDA-Public Use
  Company Number: FR-UCBSA-2023017291

PATIENT
  Sex: Female
  Weight: 80 kg

DRUGS (1)
  1. ZILUCOPLAN [Suspect]
     Active Substance: ZILUCOPLAN
     Indication: Myasthenia gravis
     Dosage: 32.4 MILLIGRAM
     Dates: start: 20230204, end: 20230330

REACTIONS (6)
  - Biliary colic [Not Recovered/Not Resolved]
  - Myasthenia gravis [Unknown]
  - Fasting [Unknown]
  - Pancreatitis acute [Unknown]
  - Weight decreased [Unknown]
  - Cholecystectomy [Unknown]

NARRATIVE: CASE EVENT DATE: 20230301
